FAERS Safety Report 8906357 (Version 1)
Quarter: 2012Q4

REPORT INFORMATION
  Report Type: Spontaneous
  Country: US (occurrence: None)
  Receive Date: 20121109
  Receipt Date: 20121109
  Transmission Date: 20130627
  Serious: Yes (Hospitalization)
  Sender: FDA-Public Use
  Company Number: None

PATIENT
  Age: 33 Year
  Sex: Female

DRUGS (1)
  1. MIRENA IUD [Suspect]
     Indication: BIRTH CONTROL
     Dates: start: 20090201, end: 20090207

REACTIONS (6)
  - Device dislocation [None]
  - Abdominal pain [None]
  - Dyspareunia [None]
  - Emotional disorder [None]
  - Depression [None]
  - Uterine perforation [None]
